FAERS Safety Report 15087908 (Version 3)
Quarter: 2020Q3

REPORT INFORMATION
  Report Type: Report from Study
  Country: FR (occurrence: FR)
  Receive Date: 20180629
  Receipt Date: 20200831
  Transmission Date: 20201102
  Serious: Yes (Death, Hospitalization, Other)
  Sender: FDA-Public Use
  Company Number: FR-ACCORD-068872

PATIENT
  Age: 41 Year
  Sex: Male
  Weight: 55 kg

DRUGS (25)
  1. OXALIPLATIN. [Suspect]
     Active Substance: OXALIPLATIN
     Indication: PANCREATIC NEUROENDOCRINE TUMOUR
     Dosage: 75 MG/M2 EVERY14 DAYS,
     Dates: start: 20151105, end: 20160218
  2. SOMATULINE [Suspect]
     Active Substance: LANREOTIDE ACETATE
     Indication: PANCREATIC NEUROENDOCRINE TUMOUR
     Dosage: 120 MG, CYCLIC, EVERY 28 DAYS
     Dates: start: 20160810
  3. OXYNORM [Concomitant]
     Active Substance: OXYCODONE HYDROCHLORIDE
     Indication: ABDOMINAL PAIN
     Dosage: UNK
     Route: 048
     Dates: start: 20160916, end: 20161004
  4. OXYNORM [Concomitant]
     Active Substance: OXYCODONE HYDROCHLORIDE
     Dosage: UNK
     Route: 048
     Dates: start: 201510
  5. FLUOROURACIL. [Suspect]
     Active Substance: FLUOROURACIL
     Indication: PANCREATIC NEUROENDOCRINE TUMOUR
     Dosage: 400 MG/M2, SINGLE
     Dates: start: 20160914, end: 20160914
  6. IRINOTECAN [Suspect]
     Active Substance: IRINOTECAN
     Indication: PANCREATIC NEUROENDOCRINE TUMOUR
     Dosage: 180 MG/M2, SINGLE
     Dates: start: 20160914
  7. SOLUPRED [Concomitant]
     Indication: ABDOMINAL PAIN
     Dosage: UNK
     Route: 048
     Dates: start: 20160920, end: 20160923
  8. MORPHINE [Concomitant]
     Active Substance: MORPHINE
     Indication: ABDOMINAL PAIN
     Dosage: UNK
     Route: 042
     Dates: start: 20161004, end: 20161007
  9. INNOHEP [Concomitant]
     Active Substance: TINZAPARIN SODIUM
     Indication: PROPHYLAXIS
     Dosage: UNK
     Route: 058
     Dates: start: 20160915
  10. FERROUS SULFATE/FOLIC ACID/MUCOPROTEOSE [Concomitant]
     Active Substance: FERROUS SULFATE\FOLIC ACID\GASTRIC MUCIN
     Indication: IRON DEFICIENCY
     Route: 048
     Dates: start: 20160630, end: 20160729
  11. GEMCITABINE/GEMCITABINE HYDROCHLORIDE [Suspect]
     Active Substance: GEMCITABINE\GEMCITABINE HYDROCHLORIDE
     Indication: PANCREATIC NEUROENDOCRINE TUMOUR
     Dosage: 500 MG/M2 EVERY 14 DAYS
     Dates: start: 20151105, end: 20160218
  12. GEMZAR [Suspect]
     Active Substance: GEMCITABINE HYDROCHLORIDE
     Indication: PRODUCT USED FOR UNKNOWN INDICATION
     Dosage: 840 MG/M2, CYCLIC:EVERY 14 DAYS
     Dates: start: 20160616, end: 20160729
  13. METHYLPREDNISOLONE. [Concomitant]
     Active Substance: METHYLPREDNISOLONE
     Indication: ABDOMINAL PAIN
     Dosage: UNK
     Route: 048
     Dates: start: 20161004, end: 20161005
  14. METHYLPREDNISOLONE. [Concomitant]
     Active Substance: METHYLPREDNISOLONE
     Indication: ABDOMINAL PAIN
     Dosage: UNK
     Route: 048
     Dates: start: 20160920, end: 20160920
  15. DUROGESIC [Concomitant]
     Active Substance: FENTANYL
     Indication: ABDOMINAL PAIN
     Dosage: UNK
     Route: 003
     Dates: start: 201510
  16. FLUOROURACIL. [Suspect]
     Active Substance: FLUOROURACIL
     Indication: PANCREATIC NEUROENDOCRINE TUMOUR
     Dosage: 1400 MG/M2, SINGLE
     Dates: start: 20160914, end: 20160914
  17. ELVORINE [Suspect]
     Active Substance: LEUCOVORIN CALCIUM
     Indication: PANCREATIC NEUROENDOCRINE TUMOUR
     Dosage: 200 MG/M2, UNK
     Dates: start: 20160914
  18. DUROGESIC [Concomitant]
     Active Substance: FENTANYL
     Indication: ABDOMINAL PAIN
     Dosage: UNK
     Route: 003
     Dates: start: 20160922, end: 20161004
  19. AMOBARBITAL/ATROPA BELLADONNA EXTRACT/DIMETICONE/ERGOTAMINE TARTRATE [Concomitant]
     Active Substance: AMOBARBITAL\BELLADONNA LEAF\DIMETHICONE\ERGOTAMINE TARTRATE
     Indication: ABDOMINAL DISTENSION
     Dosage: UNK
     Route: 048
     Dates: start: 20160729, end: 2016
  20. INIPOMP [Concomitant]
     Active Substance: PANTOPRAZOLE SODIUM
     Indication: REFLUX GASTRITIS
     Dosage: UNK
     Route: 048
     Dates: start: 20160616, end: 2016
  21. DEBRIDAT [Concomitant]
     Active Substance: TRIMEBUTINE MALEATE
     Indication: ABDOMINAL DISTENSION
     Dosage: UNK
     Route: 048
     Dates: start: 20160902, end: 2016
  22. FLUOROURACIL. [Suspect]
     Active Substance: FLUOROURACIL
     Indication: PANCREATIC NEUROENDOCRINE TUMOUR
     Dosage: 1400 MG/M2, SINGLE
     Dates: start: 20160914, end: 20160914
  23. SUTENT [Suspect]
     Active Substance: SUNITINIB MALATE
     Indication: PANCREATIC NEUROENDOCRINE TUMOUR
     Dosage: 25 MG, ONCE DAILY CONTINUOUS?37.5 MG, DAILY
     Dates: start: 20150919, end: 20151023
  24. GEMCITABINE/GEMCITABINE HYDROCHLORIDE [Suspect]
     Active Substance: GEMCITABINE\GEMCITABINE HYDROCHLORIDE
     Dosage: 500 MG/M2, Q2W
     Dates: end: 20160616
  25. SUTENT [Suspect]
     Active Substance: SUNITINIB MALATE
     Dosage: 12.5 MG, QD
     Dates: start: 20150910, end: 20150918

REACTIONS (14)
  - Psychomotor retardation [Recovered/Resolved]
  - Dyspnoea [Not Recovered/Not Resolved]
  - Hepatic pain [Recovered/Resolved]
  - Hypoaesthesia [Not Recovered/Not Resolved]
  - Off label use [Recovered/Resolved]
  - Tumour necrosis [Recovered/Resolved]
  - Neoplasm progression [Fatal]
  - Neutropenia [Unknown]
  - Abdominal pain [Not Recovered/Not Resolved]
  - Pain [Recovered/Resolved]
  - Asthenia [Recovered/Resolved]
  - Dysaesthesia [Recovered/Resolved]
  - General physical health deterioration [Recovered/Resolved]
  - Decreased appetite [Recovered/Resolved]

NARRATIVE: CASE EVENT DATE: 20150923
